FAERS Safety Report 13960217 (Version 1)
Quarter: 2017Q3

REPORT INFORMATION
  Report Type: Spontaneous
  Country: IN (occurrence: IN)
  Receive Date: 20170912
  Receipt Date: 20170912
  Transmission Date: 20171128
  Serious: Yes (Hospitalization, Other)
  Sender: FDA-Public Use
  Company Number: IN-MYLANLABS-2017M1055850

PATIENT
  Age: 45 Year
  Sex: Female

DRUGS (5)
  1. VECURONIUM [Suspect]
     Active Substance: VECURONIUM BROMIDE
     Indication: ACCIDENTAL EXPOSURE TO PRODUCT
     Route: 042
  2. ISOFLURANE. [Concomitant]
     Active Substance: ISOFLURANE
     Indication: INDUCTION OF ANAESTHESIA
     Route: 042
  3. PROPOFOL. [Suspect]
     Active Substance: PROPOFOL
     Indication: INDUCTION OF ANAESTHESIA
     Dosage: CALCULATED DOSES
     Route: 042
  4. VECURONIUM [Suspect]
     Active Substance: VECURONIUM BROMIDE
     Indication: INDUCTION OF ANAESTHESIA
     Dosage: CALCULATED DOSES
     Route: 042
  5. PROPOFOL. [Suspect]
     Active Substance: PROPOFOL
     Indication: ACCIDENTAL EXPOSURE TO PRODUCT
     Dosage: TRACES
     Route: 042

REACTIONS (5)
  - Unresponsive to stimuli [Recovering/Resolving]
  - Drug monitoring procedure incorrectly performed [Recovering/Resolving]
  - Accidental exposure to product [Recovering/Resolving]
  - Respiratory failure [Recovering/Resolving]
  - Ventricular extrasystoles [Recovering/Resolving]
